FAERS Safety Report 10205640 (Version 1)
Quarter: 2014Q2

REPORT INFORMATION
  Report Type: Spontaneous
  Country: US (occurrence: US)
  Receive Date: 20140529
  Receipt Date: 20140529
  Transmission Date: 20141212
  Serious: No
  Sender: FDA-Public Use
  Company Number: US-009507513-1405USA008795

PATIENT
  Sex: Female

DRUGS (2)
  1. NASONEX [Suspect]
     Indication: UPPER-AIRWAY COUGH SYNDROME
     Dosage: 50 MCG/2 SPRAYS PER NOSTRIL, ONCE DAILY
     Route: 045
  2. NASONEX [Suspect]
     Indication: COUGH

REACTIONS (2)
  - Drug ineffective for unapproved indication [Unknown]
  - Off label use [Unknown]
